FAERS Safety Report 9222898 (Version 2)
Quarter: 2013Q1

REPORT INFORMATION
  Report Type: Spontaneous
  Country: US (occurrence: None)
  Receive Date: 20120914
  Receipt Date: 20130222
  Transmission Date: 20140127
  Serious: Yes (Hospitalization, Other)
  Sender: FDA-Public Use
  Company Number: JPI-P-019673

PATIENT
  Age: 65 Year
  Sex: Female
  Weight: 69.4 kg

DRUGS (8)
  1. XYREM (500 MILLIGRAM/MILLILITERS, SOLUTION) (SODIUM OXYBATE) [Suspect]
     Indication: SLEEP DISORDER
     Route: 048
     Dates: start: 20030701
  2. BACLOFEN [Suspect]
     Indication: PROCTALGIA
     Dosage: 60 MG (20 MG, 3 IN 1 D), ORAL
     Route: 048
     Dates: start: 20120130, end: 20120201
  3. BACLOFEN [Suspect]
     Indication: LEVATOR SYNDROME
     Route: 061
     Dates: start: 2012
  4. MORPHINE SULFATE [Suspect]
     Route: 048
  5. LISINOPRIL [Concomitant]
  6. BISOPROLOL AND HYDROCHLOROTHIAZIDE [Concomitant]
  7. LEVOTHYROXINE SODIUM [Concomitant]
  8. ALPRAZOLAM [Concomitant]

REACTIONS (31)
  - Proctalgia [None]
  - Malaise [None]
  - Nausea [None]
  - Vomiting [None]
  - Decreased appetite [None]
  - Incoherent [None]
  - Confusional state [None]
  - Headache [None]
  - Tremor [None]
  - Hypersomnia [None]
  - Nasopharyngitis [None]
  - Rash [None]
  - Blood urine present [None]
  - Ovarian cyst [None]
  - Pelvic floor dyssynergia [None]
  - Neurotransmitter level altered [None]
  - Skin exfoliation [None]
  - Hair growth abnormal [None]
  - Acne [None]
  - Fibromyalgia [None]
  - Nightmare [None]
  - Gait disturbance [None]
  - Thermal burn [None]
  - Pelvic pain [None]
  - Pruritus [None]
  - Drug hypersensitivity [None]
  - Dehydration [None]
  - Neuralgia [None]
  - Burning sensation [None]
  - Blister [None]
  - Bladder pain [None]
